FAERS Safety Report 22017426 (Version 1)
Quarter: 2023Q1

REPORT INFORMATION
  Report Type: Other
  Country: None (occurrence: PT)
  Receive Date: 20230221
  Receipt Date: 20230221
  Transmission Date: 20230418
  Serious: Yes (Life-Threatening)
  Sender: FDA-Public Use
  Company Number: PT-B.Braun Medical Inc.-2138251

PATIENT
  Age: 13 Year

DRUGS (2)
  1. LIDOCAINE HYDROCHLORIDE AND DEXTROSE [Suspect]
     Active Substance: LIDOCAINE HYDROCHLORIDE
     Indication: Ventricular tachycardia
  2. MAGNESIUM [Suspect]
     Active Substance: MAGNESIUM

REACTIONS (1)
  - Drug ineffective [Unknown]
